FAERS Safety Report 20414903 (Version 1)
Quarter: 2022Q1

REPORT INFORMATION
  Report Type: Spontaneous
  Country: JP (occurrence: JP)
  Receive Date: 20220202
  Receipt Date: 20220202
  Transmission Date: 20220423
  Serious: Yes (Hospitalization, Other)
  Sender: FDA-Public Use
  Company Number: JP-LUPIN PHARMACEUTICALS INC.-2022-01149

PATIENT
  Age: 64 Year
  Sex: Male

DRUGS (1)
  1. LANTHANUM CARBONATE [Suspect]
     Active Substance: LANTHANUM CARBONATE
     Indication: Haemodialysis
     Dosage: 1500 MILLIGRAM, QD
     Route: 048

REACTIONS (1)
  - Gastric cancer [Unknown]
